FAERS Safety Report 6999620-X (Version None)
Quarter: 2010Q3

REPORT INFORMATION
  Report Type: 
  Country: None (occurrence: None)
  Receive Date: 20100920
  Receipt Date: 20071112
  Transmission Date: 20110219
  Serious: Yes (Other)
  Sender: FDA-Public Use
  Company Number: US-ASTRAZENECA-2007UW15922

PATIENT
  Age: 16932 Day
  Sex: Male
  Weight: 146.1 kg

DRUGS (9)
  1. SEROQUEL [Suspect]
     Indication: BIPOLAR DISORDER
     Route: 048
     Dates: start: 20030401, end: 20060301
  2. SEROQUEL [Suspect]
     Indication: DEPRESSION
     Route: 048
     Dates: start: 20030401, end: 20060301
  3. SEROQUEL [Suspect]
     Dosage: 50-150 MG
     Route: 048
     Dates: start: 20030101
  4. SEROQUEL [Suspect]
     Dosage: 50-150 MG
     Route: 048
     Dates: start: 20030101
  5. LAMICTAL [Concomitant]
     Indication: MOOD ALTERED
     Route: 048
     Dates: start: 20060425
  6. LITHIUM CARBONATE [Concomitant]
     Dosage: 300 MG QAM, 600 MG QPM
     Dates: start: 19960101
  7. LEXAPRO [Concomitant]
     Dates: start: 20030101
  8. WELLBUTRIN XL [Concomitant]
     Dosage: 150 MG
     Dates: start: 20040101, end: 20040101
  9. WELLBUTRIN XL [Concomitant]
     Dates: start: 20040916

REACTIONS (4)
  - DIABETES MELLITUS [None]
  - DIABETES MELLITUS INADEQUATE CONTROL [None]
  - LETHARGY [None]
  - TYPE 2 DIABETES MELLITUS [None]
